FAERS Safety Report 11001453 (Version 1)
Quarter: 2015Q2

REPORT INFORMATION
  Report Type: Spontaneous
  Country: US (occurrence: US)
  Receive Date: 20150408
  Receipt Date: 20150408
  Transmission Date: 20150821
  Serious: No
  Sender: FDA-Public Use
  Company Number: US-TEVA-553421USA

PATIENT
  Age: 55 Year
  Sex: Female

DRUGS (2)
  1. COPAXONE [Suspect]
     Active Substance: GLATIRAMER ACETATE
     Indication: MULTIPLE SCLEROSIS
     Dates: start: 20110202
  2. AMPYRA [Suspect]
     Active Substance: DALFAMPRIDINE
     Route: 065

REACTIONS (5)
  - Urinary tract infection [Unknown]
  - Blood urine present [Unknown]
  - Nasopharyngitis [Unknown]
  - Pyrexia [Unknown]
  - Dehydration [Unknown]

NARRATIVE: CASE EVENT DATE: 201503
